FAERS Safety Report 11092396 (Version 1)
Quarter: 2015Q2

REPORT INFORMATION
  Report Type: Spontaneous
  Country: US (occurrence: None)
  Receive Date: 20150505
  Receipt Date: 20150505
  Transmission Date: 20150821
  Serious: Yes (Death)
  Sender: FDA-Public Use
  Company Number: None

PATIENT
  Age: 80 Year
  Sex: Female
  Weight: 68 kg

DRUGS (19)
  1. ATROVENT [Concomitant]
     Active Substance: IPRATROPIUM BROMIDE
  2. XOPENEX [Concomitant]
     Active Substance: LEVALBUTEROL HYDROCHLORIDE
  3. MIRTAZAPINE. [Concomitant]
     Active Substance: MIRTAZAPINE
  4. XARELTO [Concomitant]
     Active Substance: RIVAROXABAN
  5. HEPARIN [Concomitant]
     Active Substance: HEPARIN SODIUM
  6. MEGACE [Concomitant]
     Active Substance: MEGESTROL ACETATE
  7. INDERAL [Concomitant]
     Active Substance: PROPRANOLOL HYDROCHLORIDE
  8. XARELTO [Suspect]
     Active Substance: RIVAROXABAN
     Indication: DEEP VEIN THROMBOSIS
     Route: 048
  9. LIPITOR [Concomitant]
     Active Substance: ATORVASTATIN CALCIUM
  10. SYNTHROID [Concomitant]
     Active Substance: LEVOTHYROXINE SODIUM
  11. PROTONIX [Concomitant]
     Active Substance: PANTOPRAZOLE SODIUM
  12. NACL NASAL SPRAY [Concomitant]
  13. LEVAQUIN [Concomitant]
     Active Substance: LEVOFLOXACIN
  14. XARELTO [Suspect]
     Active Substance: RIVAROXABAN
     Indication: PULMONARY EMBOLISM
     Route: 048
  15. CLONZEPAM [Concomitant]
  16. FENTANYL. [Concomitant]
     Active Substance: FENTANYL
  17. MIRALAX [Concomitant]
     Active Substance: POLYETHYLENE GLYCOL 3350
  18. SOLU-MEDROL [Concomitant]
     Active Substance: METHYLPREDNISOLONE SODIUM SUCCINATE
  19. ZOSYN [Concomitant]
     Active Substance: PIPERACILLIN SODIUM\TAZOBACTAM SODIUM

REACTIONS (7)
  - Haemoglobin decreased [None]
  - Cardio-respiratory arrest [None]
  - Intra-abdominal haemorrhage [None]
  - Therapy cessation [None]
  - International normalised ratio increased [None]
  - Creatinine renal clearance decreased [None]
  - Liver function test abnormal [None]
